FAERS Safety Report 9844894 (Version 1)
Quarter: 2014Q1

REPORT INFORMATION
  Report Type: Spontaneous
  Country: TR (occurrence: None)
  Receive Date: 20140122
  Receipt Date: 20140122
  Transmission Date: 20141002
  Serious: Yes (Hospitalization)
  Sender: FDA-Public Use
  Company Number: IMP_06948_2014

PATIENT
  Sex: Female
  Weight: 2.7 kg

DRUGS (2)
  1. VALPROIC ACID [Suspect]
     Indication: EXPOSURE DURING PREGNANCY
  2. LAMOTRIGINE [Suspect]
     Indication: EXPOSURE DURING PREGNANCY

REACTIONS (8)
  - Maternal drugs affecting foetus [None]
  - Caesarean section [None]
  - Breech presentation [None]
  - Decreased activity [None]
  - Grunting [None]
  - Poor sucking reflex [None]
  - Hypotonia neonatal [None]
  - Hyporeflexia [None]
